FAERS Safety Report 7035712-7 (Version None)
Quarter: 2010Q4

REPORT INFORMATION
  Report Type: 
  Country: None (occurrence: None)
  Receive Date: 20101008
  Receipt Date: 20101006
  Transmission Date: 20110411
  Serious: Yes (Hospitalization)
  Sender: FDA-Public Use
  Company Number: US-BRISTOL-MYERS SQUIBB COMPANY-15321581

PATIENT
  Age: 77 Year
  Sex: Female
  Weight: 58 kg

DRUGS (13)
  1. MONOPRIL [Suspect]
     Dosage: DISCONT ON 2003
  2. NORVASC [Concomitant]
  3. SYNTHROID [Concomitant]
  4. KLONOPIN [Concomitant]
  5. AMBIEN [Concomitant]
  6. DURAGESIC-100 [Concomitant]
  7. DILAUDID [Concomitant]
  8. DARVOCET [Concomitant]
     Indication: PAIN
  9. FISH OIL [Concomitant]
  10. OMEGA [Concomitant]
  11. VITAMIN E [Concomitant]
  12. VITAMIN D [Concomitant]
  13. ESTROGEN PATCH [Concomitant]

REACTIONS (1)
  - MIGRAINE [None]
